FAERS Safety Report 10382485 (Version 1)
Quarter: 2014Q3

REPORT INFORMATION
  Report Type: Report from Study
  Country: KR (occurrence: KR)
  Receive Date: 20140813
  Receipt Date: 20140813
  Transmission Date: 20150326
  Serious: Yes (Other)
  Sender: FDA-Public Use
  Company Number: KR-MYLAN-2014M1001446

PATIENT

DRUGS (8)
  1. LEVAMLODIPINE [Concomitant]
     Route: 065
  2. CLOPIDOGREL [Concomitant]
     Active Substance: CLOPIDOGREL BISULFATE
     Route: 065
  3. METFORMIN [Suspect]
     Active Substance: METFORMIN HYDROCHLORIDE
     Indication: DIABETES MELLITUS
     Route: 065
  4. DONEPEZIL [Concomitant]
     Active Substance: DONEPEZIL
     Route: 065
  5. GLYCYRRHIZA [Concomitant]
     Active Substance: LICORICE
     Route: 048
  6. CALCIUM CARBONATE. [Concomitant]
     Active Substance: CALCIUM CARBONATE
     Route: 065
  7. NICERGOLINE [Concomitant]
     Active Substance: NICERGOLINE
     Route: 065
  8. PRAVASTATIN [Concomitant]
     Active Substance: PRAVASTATIN\PRAVASTATIN SODIUM
     Route: 065

REACTIONS (5)
  - Hypokalaemia [Unknown]
  - Palpitations [Unknown]
  - Diarrhoea [Unknown]
  - Blood potassium decreased [None]
  - Insomnia [Unknown]
